FAERS Safety Report 13469625 (Version 2)
Quarter: 2017Q2

REPORT INFORMATION
  Report Type: Spontaneous
  Country: CU (occurrence: CU)
  Receive Date: 20170422
  Receipt Date: 20170427
  Transmission Date: 20170830
  Serious: Yes (Death)
  Sender: FDA-Public Use
  Company Number: CU-ROCHE-1923247

PATIENT

DRUGS (1)
  1. GAZYVA [Suspect]
     Active Substance: OBINUTUZUMAB
     Indication: PRODUCT USED FOR UNKNOWN INDICATION
     Dosage: SIX CYCLES
     Route: 042

REACTIONS (1)
  - Fungal sepsis [Fatal]

NARRATIVE: CASE EVENT DATE: 20170416
